FAERS Safety Report 8456970-8 (Version None)
Quarter: 2012Q2

REPORT INFORMATION
  Report Type: 
  Country: None (occurrence: None)
  Receive Date: 20120621
  Receipt Date: 20120612
  Transmission Date: 20120825
  Serious: No
  Sender: FDA-Public Use
  Company Number: US-BAYER-2012-057908

PATIENT
  Age: 81 Year
  Sex: Female
  Weight: 53.515 kg

DRUGS (9)
  1. OXYBUTYNIN [Concomitant]
  2. LEXAPRO [Concomitant]
  3. ANTIHYPERTENSIVES [Concomitant]
  4. POTASSIUM ACETATE [Concomitant]
  5. MULTIVITAMIN PREPARATION + MINERAL SUPPLEMENT [Concomitant]
  6. CEPHALEXIN [Concomitant]
  7. NAPROXEN (ALEVE) [Suspect]
     Indication: ANALGESIC THERAPY
     Dosage: 1 TABLET USED ONLY ONE TIME - 20 COUNT
     Route: 048
     Dates: start: 20120101, end: 20120101
  8. ALEVE (CAPLET) [Suspect]
     Indication: ANALGESIC THERAPY
     Dosage: AS NEEDED
     Route: 048
     Dates: start: 20111001
  9. VITAMIN D [Concomitant]

REACTIONS (1)
  - DRUG INEFFECTIVE [None]
